FAERS Safety Report 22958040 (Version 2)
Quarter: 2023Q4

REPORT INFORMATION
  Report Type: Spontaneous
  Country: US (occurrence: US)
  Receive Date: 20230919
  Receipt Date: 20231220
  Transmission Date: 20240110
  Serious: No
  Sender: FDA-Public Use
  Company Number: US-PROVENTION BIO, INC.-US-PRAG-23-00071

PATIENT
  Age: 24 Year
  Sex: Male
  Weight: 79.38 kg

DRUGS (7)
  1. TZIELD [Suspect]
     Active Substance: TEPLIZUMAB-MZWV
     Indication: Diabetes prophylaxis
     Dosage: 132.6 MICROGRAM, 2MG/2ML
     Route: 042
     Dates: start: 20230819, end: 20230819
  2. TZIELD [Suspect]
     Active Substance: TEPLIZUMAB-MZWV
     Dosage: 255 MICROGRAM, 2MG/2ML
     Route: 042
     Dates: start: 20230820, end: 20230820
  3. TZIELD [Suspect]
     Active Substance: TEPLIZUMAB-MZWV
     Dosage: 510 MICROGRAM, 2MG/2ML
     Route: 042
     Dates: start: 20230821, end: 20230821
  4. TZIELD [Suspect]
     Active Substance: TEPLIZUMAB-MZWV
     Dosage: 1020 MICROGRAM, 2MG/2ML
     Route: 042
     Dates: start: 20230822, end: 20230822
  5. TZIELD [Suspect]
     Active Substance: TEPLIZUMAB-MZWV
     Dosage: 2101 MICROGRAM, 2MG/2ML
     Route: 042
     Dates: start: 20230823, end: 20230901
  6. LANTUS [Concomitant]
     Active Substance: INSULIN GLARGINE
     Indication: Product used for unknown indication
     Dosage: 4 INTERNATIONAL UNIT, TID, AT BED TIME
  7. NOVOLOG [Concomitant]
     Active Substance: INSULIN ASPART
     Indication: Product used for unknown indication
     Dosage: 2 UNITS

REACTIONS (6)
  - Feeling abnormal [Recovered/Resolved]
  - Paraesthesia [Recovered/Resolved]
  - Influenza like illness [Recovering/Resolving]
  - Palpitations [Recovered/Resolved]
  - Blood glucose decreased [Recovered/Resolved]
  - Rash [Recovered/Resolved]

NARRATIVE: CASE EVENT DATE: 20230821
